FAERS Safety Report 7372219-1 (Version None)
Quarter: 2011Q1

REPORT INFORMATION
  Report Type: 
  Country: None (occurrence: None)
  Receive Date: 20110324
  Receipt Date: 20110302
  Transmission Date: 20110831
  Serious: No
  Sender: FDA-Public Use
  Company Number: US-B.I. PHARMACEUTICALS,INC./RIDGEFIELD-2011-BP-07231BP

PATIENT
  Sex: Female

DRUGS (5)
  1. METOPROLOL [Concomitant]
  2. HYDROCHLOROTHIAZIDE [Concomitant]
  3. PRADAXA [Suspect]
     Indication: ATRIAL FIBRILLATION
     Dosage: 300 MG
  4. CRESTOR [Concomitant]
  5. FISH OIL [Concomitant]

REACTIONS (3)
  - LIP SWELLING [None]
  - BURNING SENSATION [None]
  - LIP EXFOLIATION [None]
